FAERS Safety Report 16756682 (Version 1)
Quarter: 2019Q3

REPORT INFORMATION
  Report Type: Spontaneous
  Country: US (occurrence: US)
  Receive Date: 20190829
  Receipt Date: 20190829
  Transmission Date: 20191005
  Serious: Yes (Death, Other)
  Sender: FDA-Public Use
  Company Number: US-ELI_LILLY_AND_COMPANY-US201908012904

PATIENT

DRUGS (3)
  1. LANTUS [Concomitant]
     Active Substance: INSULIN GLARGINE
     Indication: PRODUCT USED FOR UNKNOWN INDICATION
  2. HUMALOG [Suspect]
     Active Substance: INSULIN LISPRO
     Indication: PRODUCT USED FOR UNKNOWN INDICATION
     Dosage: UNK UNK, UNKNOWN
     Route: 065
  3. NOVOLOG [Concomitant]
     Active Substance: INSULIN ASPART
     Indication: PRODUCT USED FOR UNKNOWN INDICATION

REACTIONS (12)
  - Urinary tract infection [Fatal]
  - Blood pressure fluctuation [Unknown]
  - Feeding disorder [Unknown]
  - Cerebrovascular accident [Fatal]
  - Cardio-respiratory arrest [Fatal]
  - Respiratory rate increased [Unknown]
  - Sepsis [Fatal]
  - Cardiac disorder [Fatal]
  - Parkinson^s disease [Fatal]
  - Dysphagia [Unknown]
  - Blood glucose increased [Unknown]
  - Fluid intake reduced [Unknown]
